FAERS Safety Report 13076177 (Version 1)
Quarter: 2016Q4

REPORT INFORMATION
  Report Type: Spontaneous
  Country: US (occurrence: US)
  Receive Date: 20161230
  Receipt Date: 20161230
  Transmission Date: 20170207
  Serious: No
  Sender: FDA-Public Use
  Company Number: US-SUPERNUS PHARMACEUTICALS, INC.-2016SUP00151

PATIENT
  Age: 49 Year
  Sex: Female
  Weight: 60.32 kg

DRUGS (1)
  1. OXTELLAR XR [Suspect]
     Active Substance: OXCARBAZEPINE
     Indication: DEPRESSION
     Dosage: 300 MG, ONCE
     Route: 048
     Dates: start: 20160816, end: 20160816

REACTIONS (3)
  - Pruritus generalised [Recovering/Resolving]
  - Off label use [Unknown]
  - Insomnia [Recovering/Resolving]

NARRATIVE: CASE EVENT DATE: 20160816
